FAERS Safety Report 8555327-9 (Version None)
Quarter: 2012Q3

REPORT INFORMATION
  Report Type: 
  Country: None (occurrence: None)
  Receive Date: 20120731
  Receipt Date: 20110902
  Transmission Date: 20120928
  Serious: Yes (Hospitalization, Other)
  Sender: FDA-Public Use
  Company Number: US-ASTRAZENECA-2011SE41293

PATIENT
  Age: 88 Year
  Sex: Male

DRUGS (10)
  1. SEROQUEL [Suspect]
     Route: 048
     Dates: start: 20110101, end: 20110101
  2. SEROQUEL [Suspect]
     Route: 048
     Dates: start: 20100101, end: 20110101
  3. SEROQUEL [Suspect]
     Indication: DEPRESSION
     Route: 048
  4. SEROQUEL [Suspect]
     Route: 048
     Dates: start: 20110101
  5. SEROQUEL [Suspect]
     Route: 048
     Dates: start: 20110101, end: 20110101
  6. SEROQUEL [Suspect]
     Route: 048
     Dates: start: 20110101, end: 20110101
  7. SEROQUEL [Suspect]
     Indication: ANXIETY
     Route: 048
  8. SEROQUEL [Suspect]
     Route: 048
     Dates: start: 20110101, end: 20110101
  9. SEROQUEL [Suspect]
     Route: 048
     Dates: start: 20110101
  10. SEROQUEL [Suspect]
     Route: 048
     Dates: start: 20100101, end: 20110101

REACTIONS (3)
  - ANXIETY [None]
  - GRAND MAL CONVULSION [None]
  - DRUG INEFFECTIVE FOR UNAPPROVED INDICATION [None]
